FAERS Safety Report 18855119 (Version 1)
Quarter: 2021Q1

REPORT INFORMATION
  Report Type: Report from Study
  Country: US (occurrence: US)
  Receive Date: 20210205
  Receipt Date: 20210205
  Transmission Date: 20210420
  Serious: Yes (Other)
  Sender: FDA-Public Use
  Company Number: US-TEVA-2020-US-1857764

PATIENT
  Age: 60 Year
  Sex: Female

DRUGS (3)
  1. COPAXONE [Suspect]
     Active Substance: GLATIRAMER ACETATE
     Dates: start: 20201014
  2. BENADRYL [Suspect]
     Active Substance: DIPHENHYDRAMINE HYDROCHLORIDE
  3. COPAXONE [Suspect]
     Active Substance: GLATIRAMER ACETATE
     Dosage: FORM STRENGTH: UNKNOWN

REACTIONS (17)
  - Dyspnoea [Unknown]
  - Diarrhoea [Unknown]
  - Injection site pruritus [Unknown]
  - Headache [Unknown]
  - Blood pressure increased [Unknown]
  - Flushing [Unknown]
  - Anaphylactic shock [Unknown]
  - Heart rate increased [Unknown]
  - Palpitations [Unknown]
  - Pruritus [Unknown]
  - Neck pain [Unknown]
  - Gastrooesophageal reflux disease [Unknown]
  - Hypersensitivity [Unknown]
  - Injection site urticaria [Unknown]
  - Injection site mass [Unknown]
  - Cough [Unknown]
  - Anxiety [Unknown]

NARRATIVE: CASE EVENT DATE: 20201207
